FAERS Safety Report 21861649 (Version 2)
Quarter: 2023Q1

REPORT INFORMATION
  Report Type: Spontaneous
  Country: JP (occurrence: JP)
  Receive Date: 20230113
  Receipt Date: 20230203
  Transmission Date: 20230418
  Serious: Yes (Other)
  Sender: FDA-Public Use
  Company Number: JP-Teva Takeda Yakuhin-2023-JP-000085J

PATIENT
  Age: 62 Year
  Sex: Male

DRUGS (3)
  1. LANSOPRAZOLE [Suspect]
     Active Substance: LANSOPRAZOLE
     Indication: Gastrointestinal haemorrhage
     Dosage: DOSAGE IS UNKNOWN
     Route: 042
  2. LANSOPRAZOLE [Suspect]
     Active Substance: LANSOPRAZOLE
     Dosage: DOSAGE IS UNKNOWN
     Route: 042
     Dates: start: 20230108, end: 20230109
  3. LANSOPRAZOLE [Suspect]
     Active Substance: LANSOPRAZOLE
     Dosage: DOSAGE IS UNKNOWN
     Route: 042
     Dates: start: 20230110, end: 20230110

REACTIONS (2)
  - Haemorrhage [Recovered/Resolved]
  - Off label use [Unknown]
